FAERS Safety Report 4279064-4 (Version None)
Quarter: 2004Q1

REPORT INFORMATION
  Report Type: 
  Country: None (occurrence: None)
  Receive Date: 20040126
  Receipt Date: 20040116
  Transmission Date: 20041129
  Serious: Yes (Death)
  Sender: FDA-Public Use
  Company Number: PHEH2004US00939

PATIENT
  Age: 44 Year
  Sex: Male

DRUGS (1)
  1. GLEEVEC [Suspect]
     Indication: CHRONIC MYELOMONOCYTIC LEUKAEMIA
     Dosage: 100 MG, QID
     Route: 048

REACTIONS (4)
  - PLEURAL EFFUSION [None]
  - PNEUMONIA [None]
  - PULMONARY HAEMORRHAGE [None]
  - PULMONARY OEDEMA [None]
